FAERS Safety Report 20004798 (Version 1)
Quarter: 2021Q4

REPORT INFORMATION
  Report Type: Report from Study
  Country: GB (occurrence: GB)
  Receive Date: 20211027
  Receipt Date: 20211027
  Transmission Date: 20220303
  Serious: Yes (Life-Threatening)
  Sender: FDA-Public Use
  Company Number: GB-TEVA-2021-GB-1968992

PATIENT
  Age: 16 Year
  Sex: Male

DRUGS (9)
  1. DEXAMETHASONE [Suspect]
     Active Substance: DEXAMETHASONE
     Indication: Peripheral T-cell lymphoma unspecified
     Dosage: UKALLR3 (UKR3) INDUCTION REGIMEN
     Route: 065
  2. VINCRISTINE [Suspect]
     Active Substance: VINCRISTINE
     Indication: Peripheral T-cell lymphoma unspecified
     Dosage: UKALLR3 (UKR3) INDUCTION REGIMEN
     Route: 065
  3. NELARABINE [Suspect]
     Active Substance: NELARABINE
     Indication: Peripheral T-cell lymphoma unspecified
     Dosage: RECEIVED 1 CYCLE OF THE NECTAR REGIMEN
     Route: 065
  4. ETOPOSIDE [Suspect]
     Active Substance: ETOPOSIDE
     Indication: Peripheral T-cell lymphoma unspecified
     Dosage: RECEIVED 1 CYCLE OF THE NECTAR REGIMEN
     Route: 065
  5. CYCLOPHOSPHAMIDE [Suspect]
     Active Substance: CYCLOPHOSPHAMIDE
     Indication: Peripheral T-cell lymphoma unspecified
     Dosage: RECEIVED 1 CYCLE OF THE NECTAR REGIMEN
     Route: 065
  6. ASPARAGINASE [Suspect]
     Active Substance: ASPARAGINASE
     Indication: Peripheral T-cell lymphoma unspecified
     Dosage: UKALLR3 (UKR3) INDUCTION REGIMEN
     Route: 065
  7. MITOXANTRONE [Suspect]
     Active Substance: MITOXANTRONE HYDROCHLORIDE
     Indication: Peripheral T-cell lymphoma unspecified
     Dosage: UKALLR3 (UKR3) INDUCTION REGIMEN
     Route: 065
  8. ROMIDEPSIN [Suspect]
     Active Substance: ROMIDEPSIN
     Indication: Peripheral T-cell lymphoma unspecified
     Dosage: RECEIVED 14MG/M2 OVER 4 HOURS ON DAYS 1, 8 AND 15
     Route: 050
  9. ALEMTUZUMAB [Suspect]
     Active Substance: ALEMTUZUMAB
     Indication: Peripheral T-cell lymphoma unspecified
     Dosage: 0.2 MG/KG WEEKLY
     Route: 058

REACTIONS (1)
  - Drug ineffective [Unknown]
